FAERS Safety Report 5678285-3 (Version None)
Quarter: 2008Q1

REPORT INFORMATION
  Report Type: 
  Country: None (occurrence: None)
  Receive Date: 20080319
  Receipt Date: 20080317
  Transmission Date: 20080703
  Serious: Yes (Death, Life-Threatening, Hospitalization, Disabling)
  Sender: FDA-Public Use
  Company Number: 100#03#2007-03975

PATIENT
  Age: 67 Year
  Sex: Male

DRUGS (27)
  1. DOXYCYCLINE [Suspect]
     Indication: DRUG USE FOR UNKNOWN INDICATION
     Dosage: 100 MG ONCE DAILY
     Route: 048
  2. ERYTHROMYCIN [Suspect]
     Indication: INFECTION
     Dosage: 250 MG (4/1 DAYS)
     Route: 048
  3. ACOMPLIA [Suspect]
     Indication: WEIGHT DECREASED
     Dosage: 20 MG (1/1 DAYS)
     Route: 048
  4. FORMOTEROL FUMARATE (EFORMOTEROL) [Concomitant]
  5. ALLOPURINOL [Concomitant]
  6. ACETYLSALICYLIC ACID SRT [Concomitant]
  7. AMOXICILLIN [Concomitant]
  8. ATORVASTATIN CALCIUM [Concomitant]
  9. BUDESONIDE [Concomitant]
  10. CHLORPHEXIDINE GLUCONATE (CHLORPHEXIDINE) [Concomitant]
  11. CIALIS [Concomitant]
  12. DAKTACORT (HYDROCORTISONE, MICONAZOLE) [Concomitant]
  13. DIPROBASE (PARAFFIN SOFT WHITE) [Concomitant]
  14. DOUBLEBASE L (ACETYLATED WOOL ALCOHOLS, ISOPROPYL MYRISTATE, LIQUID PA [Concomitant]
  15. FORMOTEROL (EFORMOTEROL) [Concomitant]
  16. FUROSEMIDE [Concomitant]
  17. GLIPIZIDE [Concomitant]
  18. HYDROCHLOROTHIAZIDE [Concomitant]
  19. LANSOPRAZOLE [Concomitant]
  20. METFORMIN HCL [Concomitant]
  21. MICONAZOLE [Concomitant]
  22. PREDNISOLONE [Concomitant]
  23. RAMIPRIL [Concomitant]
  24. ROSIGLITAZONE [Concomitant]
  25. SALAMOL (SALBUTAMOL) [Concomitant]
  26. TIOTROPIUM BROMIDE (TIOTROPIUM BROMIDE) [Concomitant]
  27. LISINOPRIL [Concomitant]

REACTIONS (6)
  - BLOOD GLUCOSE INCREASED [None]
  - BRONCHOPULMONARY ASPERGILLOSIS [None]
  - DRUG INTERACTION [None]
  - RENAL FAILURE ACUTE [None]
  - STEVENS-JOHNSON SYNDROME [None]
  - TOXIC SHOCK SYNDROME [None]
